FAERS Safety Report 4611756-7 (Version None)
Quarter: 2005Q2

REPORT INFORMATION
  Report Type: 
  Country: None (occurrence: None)
  Receive Date: 20050308
  Receipt Date: 20041208
  Transmission Date: 20051028
  Serious: Yes (Other)
  Sender: FDA-Public Use
  Company Number: 2004UW25093

PATIENT
  Age: 67 Year
  Sex: Male
  Weight: 99.79 kg

DRUGS (8)
  1. CRESTOR [Suspect]
     Indication: BLOOD CHOLESTEROL INCREASED
     Dosage: 20 MG PO
     Route: 048
  2. ASPIRIN [Concomitant]
  3. LISINOPRIL [Concomitant]
  4. FLOMAX [Concomitant]
  5. GLYBURIDE [Concomitant]
  6. ACTOS [Concomitant]
  7. ATENOLOL [Concomitant]
  8. HYDROCHLOROTHIAZIDE [Concomitant]

REACTIONS (2)
  - DRY MOUTH [None]
  - NASAL SINUS DRAINAGE [None]
